FAERS Safety Report 5491946-4 (Version None)
Quarter: 2007Q4

REPORT INFORMATION
  Report Type: 
  Country: None (occurrence: None)
  Receive Date: 20071022
  Receipt Date: 20071011
  Transmission Date: 20080405
  Serious: Yes (Hospitalization, Other)
  Sender: FDA-Public Use
  Company Number: DE-ELI_LILLY_AND_COMPANY-DE200710003420

PATIENT
  Sex: Female

DRUGS (4)
  1. GEMCITABINE HCL [Suspect]
     Indication: NEOPLASM
     Dosage: 680 MG, DAILY (1/D)
     Route: 042
     Dates: start: 20070928
  2. OXALIPLATIN [Suspect]
     Indication: NEOPLASM
     Dosage: 68 MG, DAILY (1/D)
     Route: 042
     Dates: start: 20070928
  3. ALLOPURINOL [Concomitant]
     Dosage: 100 MG, 2/D
     Route: 048
     Dates: start: 20070930
  4. COTRIM [Concomitant]
     Dosage: 40 MG, 2/D
     Route: 048
     Dates: start: 20061001

REACTIONS (2)
  - INTUSSUSCEPTION [None]
  - PYREXIA [None]
